FAERS Safety Report 17956859 (Version 6)
Quarter: 2021Q1

REPORT INFORMATION
  Report Type: Report from Study
  Country: NL (occurrence: NL)
  Receive Date: 20200629
  Receipt Date: 20210115
  Transmission Date: 20210419
  Serious: Yes (Hospitalization)
  Sender: FDA-Public Use
  Company Number: NL-PFIZER INC-2020245956

PATIENT
  Age: 58 Year
  Sex: Female
  Weight: 99 kg

DRUGS (22)
  1. SARILUMAB [Suspect]
     Active Substance: SARILUMAB
     Dosage: 200 MG EVERY 2 WEEKS
     Dates: start: 20200509, end: 20200607
  2. OMEPRAZOLE. [Concomitant]
     Active Substance: OMEPRAZOLE
     Indication: PROPHYLAXIS
     Dosage: 40 MG, 1X/DAY
     Route: 048
     Dates: start: 20200530
  3. HYDROXYCHLOROQUINE [Concomitant]
     Active Substance: HYDROXYCHLOROQUINE
     Indication: POLYNEUROPATHY
     Dosage: 400 MG, 1X/DAY
     Route: 048
     Dates: start: 2013, end: 20200402
  4. HYDROXYCHLOROQUINE [Concomitant]
     Active Substance: HYDROXYCHLOROQUINE
     Indication: RHEUMATOID ARTHRITIS
  5. PARACETAMOL [Concomitant]
     Active Substance: ACETAMINOPHEN
     Indication: PAIN
     Dosage: 1000 MG, AS NEEDED
     Route: 048
     Dates: start: 20200602
  6. CALCIUM CARBONATE W/VITAMIN D [CALCIUM CARBONATE;COLECALCIFEROL] [Concomitant]
     Active Substance: CALCIUM CARBONATE\CHOLECALCIFEROL
     Indication: OSTEOPOROSIS
     Dosage: 500 MG, 1X/DAY
     Route: 048
     Dates: start: 20200602
  7. FUCIDINE [FUSIDIC ACID] [Concomitant]
     Active Substance: FUSIDIC ACID
     Indication: ANTIBIOTIC THERAPY
     Dosage: 1 MG, 3X/DAY
     Route: 061
     Dates: start: 20200602, end: 2020
  8. TRIAMCINOLONACETONIDE [Concomitant]
     Active Substance: TRIAMCINOLONE ACETONIDE
     Indication: PRURITUS
     Dosage: 1 MG, 2X/DAY
     Route: 061
     Dates: start: 20200530, end: 2020
  9. HYALURON [HYALURONATE SODIUM] [Concomitant]
     Indication: URTICARIA
  10. CLINDAMYCIN. [Suspect]
     Active Substance: CLINDAMYCIN
     Dosage: UNK
  11. DESLORATADINE. [Concomitant]
     Active Substance: DESLORATADINE
     Indication: HYPERSENSITIVITY
     Dosage: 5 MG, AS NEEDED
     Route: 048
     Dates: start: 20200602
  12. BETAMETASONE [Concomitant]
     Active Substance: BETAMETHASONE
     Indication: PRURITUS
     Dosage: 1 MG, 2X/DAY
     Route: 048
     Dates: start: 20200602, end: 2020
  13. TRIAMCINOLONACETONIDE [Concomitant]
     Active Substance: TRIAMCINOLONE ACETONIDE
     Indication: URTICARIA
  14. PREDNISONE. [Concomitant]
     Active Substance: PREDNISONE
     Indication: PYODERMA GANGRENOSUM
     Dosage: 10 MG, 1X/DAY
     Route: 048
     Dates: start: 20181001
  15. SARILUMAB [Suspect]
     Active Substance: SARILUMAB
     Indication: RHEUMATOID ARTHRITIS
     Dosage: 200 MG EVERY 2 WEEKS
     Dates: start: 20200305, end: 20200508
  16. SARILUMAB [Suspect]
     Active Substance: SARILUMAB
     Dosage: 150 MG EVERY 2 WEEKS
     Dates: start: 20200608
  17. BETAMETASONE [Concomitant]
     Active Substance: BETAMETHASONE
     Indication: RASH
  18. HYALURON [HYALURONATE SODIUM] [Concomitant]
     Indication: PRURITUS
     Dosage: 0.15 MG, 3X/DAY
     Route: 031
     Dates: start: 20200602, end: 2020
  19. CEFTRIAXONE. [Concomitant]
     Active Substance: CEFTRIAXONE
     Dosage: UNK
  20. CLOBETASOL [Concomitant]
     Active Substance: CLOBETASOL
     Dosage: 0.25 MG/ML, 1X/DAY
     Route: 048
     Dates: start: 20200602
  21. DESLORATADINE. [Concomitant]
     Active Substance: DESLORATADINE
     Indication: RASH
  22. FUCIDINE [FUSIDIC ACID] [Concomitant]
     Active Substance: FUSIDIC ACID
     Indication: IMPETIGO

REACTIONS (5)
  - Upper respiratory tract infection bacterial [Recovered/Resolved]
  - Injection site extravasation [Unknown]
  - Urticaria [Unknown]
  - Condition aggravated [Unknown]
  - Impetigo [Recovering/Resolving]

NARRATIVE: CASE EVENT DATE: 2020
